FAERS Safety Report 5192119-5 (Version None)
Quarter: 2006Q4

REPORT INFORMATION
  Report Type: 
  Country: None (occurrence: None)
  Receive Date: 20061227
  Receipt Date: 20061219
  Transmission Date: 20070319
  Serious: Yes (Hospitalization)
  Sender: FDA-Public Use
  Company Number: US-JNJFOC-20061205375

PATIENT
  Age: 21 Month
  Sex: Male
  Weight: 11.34 kg

DRUGS (11)
  1. TYLENOL (CAPLET) [Suspect]
     Indication: URTICARIA
  2. TYLENOL (CAPLET) [Suspect]
     Indication: INFLUENZA LIKE ILLNESS
  3. TYLENOL (CAPLET) [Suspect]
     Indication: VOMITING
     Dosage: UNKNOWN
  4. BENADRYL [Suspect]
     Indication: URTICARIA
     Dosage: 1/8 TO 1/4 OF A TEASPOON
  5. BENADRYL [Suspect]
     Indication: URTICARIA
  6. BENADRYL [Suspect]
     Indication: INFLUENZA LIKE ILLNESS
  7. BENADRYL [Suspect]
     Indication: VOMITING
     Dosage: UNKNOWN
  8. STEROID [Suspect]
     Indication: URTICARIA
  9. STEROID [Suspect]
     Indication: INFLUENZA LIKE ILLNESS
  10. STEROID [Suspect]
     Indication: VOMITING
     Dosage: UNKNOWN
  11. COUGH MEDICATION [Concomitant]
     Indication: NASOPHARYNGITIS

REACTIONS (9)
  - CONDITION AGGRAVATED [None]
  - DYSPHONIA [None]
  - DYSPNOEA [None]
  - EYE SWELLING [None]
  - INFLUENZA LIKE ILLNESS [None]
  - PNEUMONIA [None]
  - REACTION TO DRUG EXCIPIENTS [None]
  - URTICARIA [None]
  - VOMITING [None]
